FAERS Safety Report 15427777 (Version 1)
Quarter: 2018Q3

REPORT INFORMATION
  Report Type: Spontaneous
  Country: JP (occurrence: JP)
  Receive Date: 20180926
  Receipt Date: 20180926
  Transmission Date: 20181010
  Serious: Yes (Other)
  Sender: FDA-Public Use
  Company Number: JP-RICON PHARMA, LLC-RIC201809-000953

PATIENT
  Age: 63 Year
  Sex: Male
  Weight: 54 kg

DRUGS (10)
  1. PROPOFOL. [Concomitant]
     Active Substance: PROPOFOL
  2. DROPERIDOL. [Concomitant]
     Active Substance: DROPERIDOL
  3. ADRENALINE [Concomitant]
     Active Substance: EPINEPHRINE
     Dosage: 1:200,000
  4. FENTANYL. [Concomitant]
     Active Substance: FENTANYL
  5. ROPIVACAINE [Suspect]
     Active Substance: ROPIVACAINE
     Dosage: 10 ML OF 0.75%
  6. ROCURONIUM [Concomitant]
     Active Substance: ROCURONIUM BROMIDE
  7. DESFLURANE. [Concomitant]
     Active Substance: DESFLURANE
  8. SUGAMMADEX [Concomitant]
     Active Substance: SUGAMMADEX
  9. LIDOCAINE. [Suspect]
     Active Substance: LIDOCAINE
     Dosage: 10 ML OF 1% LIDOCAINE
  10. ACETAMINOPHEN. [Concomitant]
     Active Substance: ACETAMINOPHEN
     Indication: PAIN

REACTIONS (4)
  - Hypoaesthesia [Recovered/Resolved]
  - Nerve block [Recovered/Resolved]
  - Musculoskeletal disorder [Recovered/Resolved]
  - Muscular weakness [Recovered/Resolved]
